FAERS Safety Report 6127940-X (Version None)
Quarter: 2009Q1

REPORT INFORMATION
  Report Type: 
  Country: None (occurrence: None)
  Receive Date: 20090320
  Receipt Date: 20090320
  Transmission Date: 20090719
  Serious: Yes (Hospitalization)
  Sender: FDA-Public Use
  Company Number: None

PATIENT
  Age: 50 Year
  Sex: Female
  Weight: 54.43 kg

DRUGS (1)
  1. CHANTIX [Suspect]
     Indication: SMOKING CESSATION THERAPY
     Dosage: 1 MG  BID PO
     Route: 048

REACTIONS (4)
  - PSYCHOTIC DISORDER [None]
  - SCRATCH [None]
  - SELF INJURIOUS BEHAVIOUR [None]
  - TRICHOTILLOMANIA [None]
